FAERS Safety Report 9203283 (Version 1)
Quarter: 2013Q2

REPORT INFORMATION
  Report Type: Spontaneous
  Country: US (occurrence: US)
  Receive Date: 20130402
  Receipt Date: 20130404
  Transmission Date: 20140414
  Serious: Yes (Other)
  Sender: FDA-Public Use
  Company Number: US-JNJFOC-20130312827

PATIENT
  Age: 26 Year
  Sex: Male

DRUGS (2)
  1. ROGAINE FOR MEN UNSPECIFIED INGREDIENT [Suspect]
     Route: 048
  2. ROGAINE FOR MEN UNSPECIFIED INGREDIENT [Suspect]
     Indication: PRODUCT USED FOR UNKNOWN INDICATION
     Route: 048

REACTIONS (5)
  - Toxicity to various agents [Unknown]
  - Convulsion [Not Recovered/Not Resolved]
  - Incorrect route of drug administration [Unknown]
  - Headache [Not Recovered/Not Resolved]
  - Nausea [Not Recovered/Not Resolved]
